FAERS Safety Report 8587720-2 (Version None)
Quarter: 2012Q3

REPORT INFORMATION
  Report Type: 
  Country: None (occurrence: None)
  Receive Date: 20120813
  Receipt Date: 20120801
  Transmission Date: 20120928
  Serious: Yes (Hospitalization, Other)
  Sender: FDA-Public Use
  Company Number: JP-AMGEN-JPNSP2012040403

PATIENT
  Age: 80 Year
  Sex: Male

DRUGS (11)
  1. OPALMON [Concomitant]
     Dosage: UNK
  2. SYMBICORT [Concomitant]
     Dosage: UNK
  3. PRANLUKAST [Concomitant]
     Dosage: UNK
  4. MYONAL                             /00287502/ [Concomitant]
     Dosage: UNK
  5. BAKUMONDOUTO [Concomitant]
     Dosage: UNK
  6. SULFAMETHOXAZOLE AND TRIMETHOPRIM [Concomitant]
     Dosage: UNK
  7. ENBREL [Suspect]
     Indication: RHEUMATOID ARTHRITIS
     Dosage: 25 MG, WEEKLY
     Route: 058
     Dates: start: 20100301, end: 20110901
  8. SOLETON [Concomitant]
     Dosage: UNK
  9. LANSOPRAZOLE [Concomitant]
     Dosage: UNK
  10. ERYTHROCIN                         /00020901/ [Concomitant]
     Dosage: UNK
  11. THEO-DUR [Concomitant]
     Dosage: UNK

REACTIONS (3)
  - GLOMERULONEPHRITIS MEMBRANOUS [None]
  - ANTINEUTROPHIL CYTOPLASMIC ANTIBODY POSITIVE [None]
  - PROTEINURIA [None]
